FAERS Safety Report 5097945-9 (Version None)
Quarter: 2006Q3

REPORT INFORMATION
  Report Type: 
  Country: None (occurrence: None)
  Receive Date: 20060905
  Receipt Date: 20060905
  Transmission Date: 20061208
  Serious: Yes (Death)
  Sender: FDA-Public Use
  Company Number: None

PATIENT
  Age: 76 Year
  Sex: Male
  Weight: 80.2867 kg

DRUGS (3)
  1. CETUXIMAB BRISTOL MYER SQUIBB [Suspect]
     Indication: MYELOMA RECURRENCE
     Dosage: 525 MG - LOADING DOSE 840 MGS WEEKLY IV
     Route: 042
     Dates: start: 20060403, end: 20060710
  2. DECADRON [Concomitant]
  3. ARANESP [Concomitant]

REACTIONS (3)
  - ASTHENIA [None]
  - DISEASE PROGRESSION [None]
  - EPISTAXIS [None]
